FAERS Safety Report 9182246 (Version 1)
Quarter: 2012Q4

REPORT INFORMATION
  Report Type: 
  Country: US (occurrence: US)
  Receive Date: 20121030
  Receipt Date: 20121030
  Transmission Date: 20130627
  Serious: No
  Sender: FDA-Public Use
  Company Number: US-GLAXOSMITHKLINE-A0978745A

PATIENT
  Sex: Female

DRUGS (7)
  1. SEREVENT [Suspect]
     Indication: CHRONIC OBSTRUCTIVE PULMONARY DISEASE
     Dosage: 1PUFF Twice per day
     Route: 055
     Dates: start: 2007
  2. QVAR [Concomitant]
  3. ATROVENT [Concomitant]
  4. CRESTOR [Concomitant]
  5. DILTIAZEM [Concomitant]
  6. ASPIRIN [Concomitant]
  7. ZYRTEC [Concomitant]

REACTIONS (1)
  - Erythema [Not Recovered/Not Resolved]
